FAERS Safety Report 6076545-8 (Version None)
Quarter: 2009Q1

REPORT INFORMATION
  Report Type: 
  Country: None (occurrence: None)
  Receive Date: 20090213
  Receipt Date: 20090204
  Transmission Date: 20090719
  Serious: Yes (Disabling)
  Sender: FDA-Public Use
  Company Number: JP-ASTRAZENECA-2009SE00722

PATIENT
  Age: 68 Year
  Sex: Male

DRUGS (3)
  1. BLOPRESS [Suspect]
     Indication: DRUG USE FOR UNKNOWN INDICATION
     Route: 048
  2. ARISTOCOR [Concomitant]
     Route: 065
  3. NOMEXOR [Concomitant]
     Route: 048

REACTIONS (1)
  - VITREOUS OPACITIES [None]
